FAERS Safety Report 7962924 (Version 6)
Quarter: 2013Q1

REPORT INFORMATION
  Report Type: Report from Study
  Country: JP (occurrence: JP)
  Receive Date: 20110526
  Receipt Date: 20130211
  Transmission Date: 20140127
  Serious: Yes (Hospitalization, Other)
  Sender: FDA-Public Use
  Company Number: JP-BRISTOL-MYERS SQUIBB COMPANY-15772965

PATIENT
  Age: 64 Year
  Sex: Female

DRUGS (1)
  1. SPRYCEL [Suspect]
     Indication: ACUTE LYMPHOCYTIC LEUKAEMIA
     Dosage: 30MAR-16MAY11,140MGX2/D?21JUN-17NOV11,100MG/D?18NOV11-02MAR12,50MG/D
     Route: 048
     Dates: start: 20110330, end: 20120302

REACTIONS (4)
  - Interstitial lung disease [Recovered/Resolved]
  - Liver disorder [Not Recovered/Not Resolved]
  - Platelet count decreased [Recovered/Resolved]
  - Pyrexia [Recovered/Resolved]
